FAERS Safety Report 7887500-7 (Version None)
Quarter: 2011Q4

REPORT INFORMATION
  Report Type: 
  Country: None (occurrence: None)
  Receive Date: 20111103
  Receipt Date: 20111020
  Transmission Date: 20120403
  Serious: Yes (Other)
  Sender: FDA-Public Use
  Company Number: JP-AMGEN-JPNSP2011044840

PATIENT
  Age: 60 Year
  Sex: Female
  Weight: 54 kg

DRUGS (13)
  1. EVOXAC [Concomitant]
     Indication: SJOGREN'S SYNDROME
     Dosage: 30 MG, 2X/DAY
     Route: 048
  2. FAMOTIDINE [Concomitant]
     Indication: GASTRITIS PROPHYLAXIS
     Dosage: 10 MG, 2X/DAY
     Route: 048
  3. EVISTA [Concomitant]
     Indication: OSTEOPOROSIS
     Dosage: 60 MG, 1X/DAY
     Route: 048
  4. ENBREL [Suspect]
     Indication: RHEUMATOID ARTHRITIS
     Dosage: 25 MG, 2X/WEEK
     Route: 058
     Dates: start: 20101122
  5. RHEUMATREX [Concomitant]
     Indication: RHEUMATOID ARTHRITIS
     Dosage: UNK
     Dates: start: 19921001
  6. SULFAMETHOXAZOLE [Concomitant]
     Indication: PROPHYLAXIS
     Dosage: 1 DF, 2X/WEEK
     Route: 048
  7. VOLTAREN [Concomitant]
     Indication: RHEUMATOID ARTHRITIS
     Dosage: UNK
     Dates: start: 19910101
  8. MAGMITT [Concomitant]
     Indication: CONSTIPATION
     Dosage: 250 MG, 3X/DAY
     Route: 048
  9. ISONIAZID [Concomitant]
     Indication: ANTIBIOTIC PROPHYLAXIS
     Dosage: 300 MG, 1X/DAY
     Route: 048
  10. VOLTAREN [Concomitant]
     Dosage: 12.5 MG, AS NEEDED
     Route: 054
  11. FOLIC ACID [Concomitant]
     Indication: PROPHYLAXIS
     Dosage: 5 MG, WEEKLY
     Route: 048
  12. PYDOXAL [Concomitant]
     Indication: PROPHYLAXIS
     Dosage: 30 MG, 1X/DAY
     Route: 048
  13. RHEUMATREX [Concomitant]
     Dosage: 8 MG, WEEKLY
     Route: 048

REACTIONS (1)
  - ORGANISING PNEUMONIA [None]
